FAERS Safety Report 5190041-1 (Version None)
Quarter: 2006Q4

REPORT INFORMATION
  Report Type: 
  Country: None (occurrence: None)
  Receive Date: 20061215
  Receipt Date: 20061128
  Transmission Date: 20070319
  Serious: Yes (Hospitalization)
  Sender: FDA-Public Use
  Company Number: 2006PL000034

PATIENT
  Age: 49 Year
  Sex: Male

DRUGS (3)
  1. AZATHIOPRINE [Suspect]
     Indication: CROHN'S DISEASE
     Dosage: 2.5 MG/KG;QD;PO
     Route: 048
     Dates: start: 20041101, end: 20041227
  2. MESALAZINE [Concomitant]
  3. PREDNISONE TAB [Concomitant]

REACTIONS (2)
  - APLASTIC ANAEMIA [None]
  - DRUG TOXICITY [None]
